FAERS Safety Report 6940803-2 (Version None)
Quarter: 2010Q3

REPORT INFORMATION
  Report Type: 
  Country: None (occurrence: None)
  Receive Date: 20100825
  Receipt Date: 20100819
  Transmission Date: 20110219
  Serious: Yes (Life-Threatening, Hospitalization)
  Sender: FDA-Public Use
  Company Number: JP-JNJFOC-20100807387

PATIENT
  Age: 78 Year
  Sex: Female

DRUGS (4)
  1. DUROTEP MT [Suspect]
     Indication: CANCER PAIN
     Route: 062
  2. CODEINE PHOSPHATE [Concomitant]
     Indication: CANCER PAIN
     Route: 048
  3. CODEINE PHOSPHATE [Concomitant]
     Route: 048
  4. CODEINE PHOSPHATE [Concomitant]
     Route: 048

REACTIONS (7)
  - ALTERED STATE OF CONSCIOUSNESS [None]
  - BLOOD PRESSURE INCREASED [None]
  - EATING DISORDER [None]
  - NARCOTIC INTOXICATION [None]
  - OXYGEN SATURATION DECREASED [None]
  - RESPIRATORY DEPRESSION [None]
  - VOMITING [None]
